FAERS Safety Report 10909003 (Version 2)
Quarter: 2018Q1

REPORT INFORMATION
  Report Type: Spontaneous
  Country: US (occurrence: US)
  Receive Date: 20150312
  Receipt Date: 20180319
  Transmission Date: 20180508
  Serious: No
  Sender: FDA-Public Use
  Company Number: US-SA-2014SA032232

PATIENT
  Age: 39 Year
  Sex: Male
  Weight: 77 kg

DRUGS (8)
  1. NASACORT ALLERGY 24HR [Suspect]
     Active Substance: TRIAMCINOLONE ACETONIDE
     Indication: RHINITIS
     Dosage: 2 SPRAY CYCLES IN MORNING
     Route: 065
     Dates: start: 20140227, end: 20140405
  2. NASACORT ALLERGY 24HR [Suspect]
     Active Substance: TRIAMCINOLONE ACETONIDE
     Indication: SINUSITIS
     Dosage: 2 SPRAY CYCLES IN MORNING
     Route: 065
     Dates: start: 20140227, end: 20140405
  3. NASACORT ALLERGY 24HR [Suspect]
     Active Substance: TRIAMCINOLONE ACETONIDE
     Indication: SINUSITIS
     Dosage: 2 SPRAY CYCLES IN MORNING
     Route: 065
     Dates: start: 20140227, end: 20140405
  4. NASACORT ALLERGY 24HR [Suspect]
     Active Substance: TRIAMCINOLONE ACETONIDE
     Indication: RHINITIS
     Dosage: 2 SPRAY CYCLES IN MORNING
     Route: 065
     Dates: start: 20140227, end: 20140405
  5. NASACORT AQ [Concomitant]
     Active Substance: TRIAMCINOLONE ACETONIDE
     Indication: RHINITIS
     Route: 065
     Dates: start: 200512, end: 20140305
  6. NASACORT ALLERGY 24HR [Suspect]
     Active Substance: TRIAMCINOLONE ACETONIDE
     Indication: SINUSITIS
     Dosage: 2 SPRAY CYCLES IN MORNING
     Route: 065
     Dates: start: 20140227, end: 20140405
  7. NASACORT ALLERGY 24HR [Suspect]
     Active Substance: TRIAMCINOLONE ACETONIDE
     Indication: RHINITIS
     Dosage: 2 SPRAY CYCLES IN MORNING
     Route: 065
     Dates: start: 20140227, end: 20140405
  8. NASACORT AQ [Concomitant]
     Active Substance: TRIAMCINOLONE ACETONIDE
     Indication: SINUSITIS
     Route: 065
     Dates: start: 200512, end: 20140305

REACTIONS (1)
  - Drug ineffective [Unknown]
